FAERS Safety Report 8166101-X (Version None)
Quarter: 2012Q1

REPORT INFORMATION
  Report Type: 
  Country: None (occurrence: None)
  Receive Date: 20120227
  Receipt Date: 20110404
  Transmission Date: 20120608
  Serious: No
  Sender: FDA-Public Use
  Company Number: US-MYLANLABS-2011S1005820

PATIENT
  Age: 18 Year
  Sex: Male
  Weight: 79.83 kg

DRUGS (2)
  1. IBUPROFEN [Concomitant]
     Dosage: ONE OR TWO QD
     Route: 048
  2. AMNESTEEM [Suspect]
     Indication: ACNE
     Route: 048
     Dates: start: 20101224, end: 20110227

REACTIONS (1)
  - DEPRESSION [None]
